FAERS Safety Report 9670892 (Version 3)
Quarter: 2014Q2

REPORT INFORMATION
  Report Type: Spontaneous
  Country: BR (occurrence: BR)
  Receive Date: 20131106
  Receipt Date: 20140402
  Transmission Date: 20141212
  Serious: Yes (Other)
  Sender: FDA-Public Use
  Company Number: PHHY2013BR124938

PATIENT
  Age: 42 Year
  Sex: Female
  Weight: 80 kg

DRUGS (5)
  1. ACLASTA [Suspect]
     Indication: OSTEOPOROSIS
     Dosage: 5 MG/100 ML, YEARLY
     Route: 030
     Dates: start: 20110830
  2. ACLASTA [Suspect]
     Dosage: 5 MG/100 ML, YEARLY
     Route: 030
     Dates: start: 20120930
  3. ACLASTA [Suspect]
     Dosage: 5 MG/100 ML, YEARLY
     Route: 030
     Dates: start: 20130730
  4. OSTEONUTRI [Concomitant]
     Indication: OSTEOPOROSIS
     Dosage: 1 DF, UNK
     Route: 048
  5. OSTEONUTRI [Concomitant]
     Indication: VITAMIN D DEFICIENCY

REACTIONS (11)
  - Dental necrosis [Not Recovered/Not Resolved]
  - Tooth disorder [Not Recovered/Not Resolved]
  - Osteonecrosis of jaw [Recovering/Resolving]
  - Lip swelling [Not Recovered/Not Resolved]
  - Cheilitis [Not Recovered/Not Resolved]
  - Stomatitis [Not Recovered/Not Resolved]
  - Purulence [Not Recovered/Not Resolved]
  - Incorrect route of drug administration [Unknown]
  - Inappropriate schedule of drug administration [Unknown]
  - Myalgia [Not Recovered/Not Resolved]
  - Pyrexia [Recovered/Resolved]
